FAERS Safety Report 10181310 (Version 2)
Quarter: 2016Q4

REPORT INFORMATION
  Report Type: Report from Study
  Country: US (occurrence: US)
  Receive Date: 20140519
  Receipt Date: 20161005
  Transmission Date: 20170206
  Serious: No
  Sender: FDA-Public Use
  Company Number: US-AMGEN INC.-USASP2014033059

PATIENT
  Age: 59 Year
  Sex: Female
  Weight: 53.61 kg

DRUGS (2)
  1. PROLIA [Suspect]
     Active Substance: DENOSUMAB
     Indication: OSTEOPOROSIS
     Dosage: UNK
     Route: 065
     Dates: start: 20131213
  2. VITAMINS [Concomitant]
     Active Substance: VITAMINS
     Route: 065

REACTIONS (6)
  - Ligament sprain [Unknown]
  - Weight decreased [Not Recovered/Not Resolved]
  - Increased appetite [Unknown]
  - Intervertebral disc disorder [Unknown]
  - Stress [Unknown]
  - Anxiety [Unknown]

NARRATIVE: CASE EVENT DATE: 20140217
